FAERS Safety Report 10651507 (Version 1)
Quarter: 2014Q4

REPORT INFORMATION
  Report Type: Spontaneous
  Country: PH (occurrence: None)
  Receive Date: 20141211
  Receipt Date: 20141211
  Transmission Date: 20150529
  Serious: Yes (Death, Other)
  Sender: FDA-Public Use
  Company Number: 2014JUB00207

PATIENT
  Age: 31 Year
  Sex: Male

DRUGS (1)
  1. METHYLPREDNISOLONE. [Suspect]
     Active Substance: METHYLPREDNISOLONE
     Indication: NEPHROTIC SYNDROME
     Route: 042

REACTIONS (7)
  - Abdominal wall abscess [None]
  - Condition aggravated [None]
  - Strongyloidiasis [None]
  - Groin abscess [None]
  - Pneumonia [None]
  - Acute respiratory distress syndrome [None]
  - Oedema [None]
